FAERS Safety Report 19065399 (Version 3)
Quarter: 2021Q4

REPORT INFORMATION
  Report Type: Report from Study
  Country: US (occurrence: US)
  Receive Date: 20210327
  Receipt Date: 20211213
  Transmission Date: 20220304
  Serious: No
  Sender: FDA-Public Use
  Company Number: NVSC2021US066084

PATIENT
  Sex: Female
  Weight: 130 kg

DRUGS (4)
  1. TREPROSTINIL [Suspect]
     Active Substance: TREPROSTINIL
     Indication: Product used for unknown indication
     Dosage: 137 NG/KG/MIN
     Route: 042
     Dates: start: 20200115
  2. TREPROSTINIL [Suspect]
     Active Substance: TREPROSTINIL
     Dosage: 140 NG/KG/MIN
     Route: 042
     Dates: start: 20200115
  3. OPSUMIT [Concomitant]
     Active Substance: MACITENTAN
     Indication: Product used for unknown indication
     Dosage: UNK
     Route: 065
  4. TADALAFIL [Concomitant]
     Active Substance: TADALAFIL
     Indication: Product used for unknown indication
     Dosage: UNK
     Route: 065

REACTIONS (2)
  - Catheter site extravasation [Unknown]
  - Incorrect dose administered by product [Unknown]
